FAERS Safety Report 6813618-3 (Version None)
Quarter: 2010Q3

REPORT INFORMATION
  Report Type: 
  Country: None (occurrence: None)
  Receive Date: 20100701
  Receipt Date: 20100621
  Transmission Date: 20110219
  Serious: Yes (Other)
  Sender: FDA-Public Use
  Company Number: PL-PFIZER INC-2010077646

PATIENT
  Age: 77 Year
  Sex: Female

DRUGS (3)
  1. METHYLPREDNISOLONE SODIUM SUCCINATE [Suspect]
     Dosage: 500 MG/24H INTRAVENOUSLY FOR 5 DAYS
     Route: 042
  2. METHYLPREDNISOLONE [Suspect]
     Dosage: 48MG/24 H
     Route: 048
  3. CYCLOPHOSPHAMIDE [Suspect]

REACTIONS (1)
  - LEUKOPENIA [None]
